FAERS Safety Report 16576651 (Version 2)
Quarter: 2020Q1

REPORT INFORMATION
  Report Type: Report from Study
  Country: US (occurrence: US)
  Receive Date: 20190716
  Receipt Date: 20200305
  Transmission Date: 20200409
  Serious: Yes (Life-Threatening, Hospitalization, Other)
  Sender: FDA-Public Use
  Company Number: US-SA-2018SA233788

PATIENT
  Age: 55 Year
  Sex: Male
  Weight: 84 kg

DRUGS (2)
  1. ALEMTUZUMAB [Suspect]
     Active Substance: ALEMTUZUMAB
     Indication: MULTIPLE SCLEROSIS
     Dosage: 12 MG, QD
     Route: 041
     Dates: start: 20180813, end: 20180817
  2. VALACYCLOVIR HCL [Concomitant]
     Active Substance: VALACYCLOVIR HYDROCHLORIDE
     Indication: HERPES VIRUS INFECTION
     Dosage: 500 MG
     Route: 065
     Dates: start: 20180810

REACTIONS (11)
  - Haemoglobin decreased [Recovered/Resolved]
  - Rash pruritic [Recovered/Resolved]
  - Swelling [Recovered/Resolved]
  - Immune thrombocytopenic purpura [Recovered/Resolved with Sequelae]
  - Rash macular [Unknown]
  - Epistaxis [Unknown]
  - Platelet count decreased [Unknown]
  - Oral mucosal blistering [Recovered/Resolved]
  - Petechiae [Recovered/Resolved]
  - Autoimmune haemolytic anaemia [Not Recovered/Not Resolved]
  - Pruritus [Not Recovered/Not Resolved]

NARRATIVE: CASE EVENT DATE: 201808
